FAERS Safety Report 6611516-1 (Version None)
Quarter: 2010Q1

REPORT INFORMATION
  Report Type: 
  Country: None (occurrence: None)
  Receive Date: 20100303
  Receipt Date: 20100218
  Transmission Date: 20100710
  Serious: Yes (Other)
  Sender: FDA-Public Use
  Company Number: PHBS2005BR11849

PATIENT
  Age: 37 Year
  Sex: Male
  Weight: 90 kg

DRUGS (4)
  1. TEGRETOL [Suspect]
     Indication: CONVULSION
     Dosage: 400 MG, EACH 3 DAYS
     Route: 048
     Dates: start: 19870101
  2. TEGRETOL [Suspect]
     Dosage: 400 MG, DAILY 1 TABLET
  3. ANAFRANIL [Concomitant]
     Indication: DEPRESSION
     Dosage: 25 MG, Q72H
     Route: 048
  4. ANAFRANIL [Concomitant]
     Dosage: 25 MG DAILY ON MORNING

REACTIONS (10)
  - ANXIETY [None]
  - BLOOD PRESSURE INCREASED [None]
  - DEPRESSION [None]
  - DIZZINESS [None]
  - NAUSEA [None]
  - PALPITATIONS [None]
  - RESPIRATORY RATE DECREASED [None]
  - SENSORY DISTURBANCE [None]
  - SOMNOLENCE [None]
  - URINE ODOUR ABNORMAL [None]
